FAERS Safety Report 24586484 (Version 1)
Quarter: 2024Q4

REPORT INFORMATION
  Report Type: Spontaneous
  Country: TH (occurrence: TH)
  Receive Date: 20241106
  Receipt Date: 20241106
  Transmission Date: 20250115
  Serious: Yes (Hospitalization, Other)
  Sender: MERCK
  Company Number: TH-009507513-2411THA000777

PATIENT
  Age: 58 Year
  Sex: Female

DRUGS (6)
  1. KEYTRUDA [Suspect]
     Active Substance: PEMBROLIZUMAB
     Indication: Triple negative breast cancer
     Dosage: 4 CYCLES WITH CARBO+PAC
     Dates: start: 20240401, end: 2024
  2. KEYTRUDA [Suspect]
     Active Substance: PEMBROLIZUMAB
     Dosage: 3 CYCLES WITH DOXORUBICIN AND CYCLOPHOSPHAMIDE (AC)
     Dates: start: 2024, end: 20240814
  3. CARBOPLATIN [Suspect]
     Active Substance: CARBOPLATIN
     Indication: Triple negative breast cancer
     Dosage: CARBO PAC+PEM 4 CYCLES
     Dates: start: 20240401, end: 2024
  4. PACLITAXEL [Suspect]
     Active Substance: PACLITAXEL
     Indication: Triple negative breast cancer
     Dosage: CARBO PAC+PEM 4 CYCLES
     Dates: start: 20240401, end: 2024
  5. DOXORUBICIN [Suspect]
     Active Substance: DOXORUBICIN
     Indication: Triple negative breast cancer
     Dosage: AC+PEM 3 CYCLES
     Dates: start: 2024
  6. CYCLOPHOSPHAMIDE [Suspect]
     Active Substance: CYCLOPHOSPHAMIDE
     Indication: Triple negative breast cancer
     Dosage: AC+PEM 3 CYCLES
     Dates: start: 2024

REACTIONS (6)
  - Febrile neutropenia [Unknown]
  - Surgery [Unknown]
  - Septic shock [Unknown]
  - Diarrhoea [Unknown]
  - Urinary tract infection [Unknown]
  - Feeding disorder [Unknown]

NARRATIVE: CASE EVENT DATE: 20240101
